FAERS Safety Report 25954808 (Version 3)
Quarter: 2025Q4

REPORT INFORMATION
  Report Type: Other
  Country: US (occurrence: US)
  Receive Date: 20251024
  Receipt Date: 20251113
  Transmission Date: 20260118
  Serious: Yes (Other)
  Sender: INTERCEPT PHARMACEUTICALS
  Company Number: US-INTERCEPT-PM2023002217

PATIENT
  Age: 70 Year
  Sex: Female
  Weight: 130 kg

DRUGS (26)
  1. OCALIVA [Suspect]
     Active Substance: OBETICHOLIC ACID
     Indication: Primary biliary cholangitis
     Dosage: 5 MILLIGRAM, QD
     Dates: start: 202308
  2. OCALIVA [Suspect]
     Active Substance: OBETICHOLIC ACID
     Dosage: 2.5 MILLIGRAM, QD
     Dates: end: 20240110
  3. OCALIVA [Suspect]
     Active Substance: OBETICHOLIC ACID
     Dosage: 2.5 MILLIGRAM, QD
     Dates: start: 20240112, end: 2024
  4. OCALIVA [Suspect]
     Active Substance: OBETICHOLIC ACID
     Dosage: 2.5 MILLIGRAM, BID
     Dates: start: 20240728
  5. OCALIVA [Suspect]
     Active Substance: OBETICHOLIC ACID
     Dosage: 2.5 MILLIGRAM, BID
     Dates: end: 20251014
  6. URSODIOL (URSO FORATE) [Concomitant]
     Indication: Primary biliary cholangitis
     Dates: start: 2019
  7. URSODIOL (URSO FORATE) [Concomitant]
  8. NORVASC [Concomitant]
     Active Substance: AMLODIPINE BESYLATE
  9. CALCIUM CARBONATE [Concomitant]
     Active Substance: CALCIUM CARBONATE
  10. ZYRTEC [Concomitant]
     Active Substance: CETIRIZINE HYDROCHLORIDE
  11. VITAMIN D3 [Concomitant]
     Active Substance: CHOLECALCIFEROL
  12. MINERALS\VITAMINS [Concomitant]
     Active Substance: MINERALS\VITAMINS
  13. DOCONEXENT [Concomitant]
     Active Substance: DOCONEXENT
  14. FLONASE [Concomitant]
     Active Substance: FLUTICASONE PROPIONATE
  15. LASIX [Concomitant]
     Active Substance: FUROSEMIDE
  16. GLUCOSAMINE + CHONDORITIN [Concomitant]
  17. OMEPRAZOLE [Concomitant]
     Active Substance: OMEPRAZOLE
  18. PLAQUENIL [Concomitant]
     Active Substance: HYDROXYCHLOROQUINE SULFATE
  19. ADVIL [Concomitant]
     Active Substance: IBUPROFEN
  20. SYNTHROID [Concomitant]
     Active Substance: LEVOTHYROXINE SODIUM
  21. FISH OIL [Concomitant]
     Active Substance: FISH OIL
  22. POTASSIUM CHLORIDE [Concomitant]
     Active Substance: POTASSIUM CHLORIDE
  23. LIDOCAINE [Concomitant]
     Active Substance: LIDOCAINE
  24. VITAMIN D3-TOCOPHERSOLAN [Concomitant]
  25. URSODIOL (ACTIGALL) [Concomitant]
     Indication: Primary biliary cholangitis
  26. URSODIOL (ACTIGALL) [Concomitant]

REACTIONS (34)
  - Atrial fibrillation [Recovering/Resolving]
  - Oesophageal candidiasis [Recovered/Resolved]
  - Hepatic cirrhosis [Unknown]
  - Pancreatic cyst [Not Recovered/Not Resolved]
  - Musculoskeletal chest pain [Recovered/Resolved]
  - Gastrooesophageal reflux disease [Recovered/Resolved]
  - Diarrhoea [Recovered/Resolved]
  - Alopecia [Not Recovered/Not Resolved]
  - Vitamin B12 increased [Unknown]
  - Vitamin D increased [Not Recovered/Not Resolved]
  - Dehydration [Recovering/Resolving]
  - Myalgia [Not Recovered/Not Resolved]
  - Electrolyte imbalance [Recovering/Resolving]
  - Pancreatic mass [Not Recovered/Not Resolved]
  - Hepatic steatosis [Unknown]
  - Anal incontinence [Recovering/Resolving]
  - Brain natriuretic peptide increased [Unknown]
  - Gastroenteritis viral [Recovered/Resolved]
  - Laryngitis [Unknown]
  - Back pain [Recovered/Resolved]
  - Hepatic enzyme abnormal [Not Recovered/Not Resolved]
  - Blood alkaline phosphatase abnormal [Unknown]
  - Asthenia [Unknown]
  - Palpitations [Recovered/Resolved]
  - Arthralgia [Not Recovered/Not Resolved]
  - Peripheral swelling [Recovering/Resolving]
  - Constipation [Recovering/Resolving]
  - Fatigue [Not Recovered/Not Resolved]
  - Pruritus [Recovered/Resolved]
  - Abdominal pain upper [Not Recovered/Not Resolved]
  - Intentional dose omission [Recovered/Resolved]
  - Product administration error [Recovered/Resolved]
  - Wrong technique in product usage process [Recovered/Resolved]
  - Therapy cessation [Not Recovered/Not Resolved]

NARRATIVE: CASE EVENT DATE: 20231228
